FAERS Safety Report 5320146-3 (Version None)
Quarter: 2007Q1

REPORT INFORMATION
  Report Type: 
  Country: None (occurrence: None)
  Receive Date: 20070209
  Receipt Date: 20061004
  Transmission Date: 20070707
  Serious: No
  Sender: FDA-Public Use
  Company Number: 200617052US

PATIENT
  Age: 72 Year
  Sex: Female
  Weight: 76.36 kg

DRUGS (9)
  1. APIDRA [Suspect]
     Indication: DIABETES MELLITUS
     Dosage: 8 U
     Dates: start: 20060101
  2. OPTICLIK [Suspect]
     Indication: DIABETES MELLITUS
  3. LANTUS [Suspect]
     Indication: DIABETES MELLITUS
     Dosage: 18 U QD
     Dates: start: 20060101
  4. LANTUS [Suspect]
     Indication: DIABETES MELLITUS
     Dosage: 59 U QD
     Dates: start: 20060101
  5. LANTUS [Suspect]
     Indication: DIABETES MELLITUS
     Dosage: 69 U QD
     Dates: start: 20060101
  6. OPTICLICK [Suspect]
     Indication: DIABETES MELLITUS
  7. METFORMIN HCL [Concomitant]
  8. PAIN PILLS [Concomitant]
  9. OTHER MEDICATIONS [Concomitant]

REACTIONS (1)
  - NO ADVERSE DRUG EFFECT [None]
